FAERS Safety Report 10944281 (Version 2)
Quarter: 2015Q3

REPORT INFORMATION
  Report Type: Spontaneous
  Country: US (occurrence: US)
  Receive Date: 20150323
  Receipt Date: 20150721
  Transmission Date: 20151125
  Serious: No
  Sender: FDA-Public Use
  Company Number: US-BIOGENIDEC-2015BI020137

PATIENT
  Age: 42 Year
  Sex: Female

DRUGS (3)
  1. AVONEX [Suspect]
     Active Substance: INTERFERON BETA-1A
     Indication: MULTIPLE SCLEROSIS
     Route: 030
  2. AVONEX [Suspect]
     Active Substance: INTERFERON BETA-1A
     Indication: MULTIPLE SCLEROSIS
     Route: 030
  3. AVONEX [Suspect]
     Active Substance: INTERFERON BETA-1A
     Indication: MULTIPLE SCLEROSIS
     Route: 030
     Dates: start: 19960701

REACTIONS (13)
  - Influenza like illness [Unknown]
  - Malaise [Recovered/Resolved]
  - Headache [Recovered/Resolved]
  - Blindness [Recovered/Resolved]
  - Confusional state [Not Recovered/Not Resolved]
  - Insomnia [Recovered/Resolved]
  - Mobility decreased [Recovered/Resolved]
  - Adverse reaction [Recovered/Resolved with Sequelae]
  - Chills [Unknown]
  - Gait disturbance [Unknown]
  - Vomiting [Unknown]
  - Cognitive disorder [Unknown]
  - Migraine [Unknown]

NARRATIVE: CASE EVENT DATE: 19960701
